FAERS Safety Report 22206393 (Version 2)
Quarter: 2023Q2

REPORT INFORMATION
  Report Type: Spontaneous
  Country: US (occurrence: US)
  Receive Date: 20230413
  Receipt Date: 20230605
  Transmission Date: 20230722
  Serious: Yes (Life-Threatening)
  Sender: FDA-Public Use
  Company Number: US-JNJFOC-20230412028

PATIENT
  Age: 66 Year
  Sex: Male
  Weight: 61.6 kg

DRUGS (12)
  1. REMICADE [Suspect]
     Active Substance: INFLIXIMAB
     Indication: Psoriatic arthropathy
     Route: 041
     Dates: start: 20230307, end: 20230329
  2. ASPIRIN [Concomitant]
     Active Substance: ASPIRIN
     Dates: start: 20230106
  3. ZOLOFT [Concomitant]
     Active Substance: SERTRALINE HYDROCHLORIDE
     Dates: start: 20230106
  4. LISINOPRIL [Concomitant]
     Active Substance: LISINOPRIL
     Dates: start: 20230106
  5. SINGULAIR [Concomitant]
     Active Substance: MONTELUKAST SODIUM
     Dates: start: 20230106
  6. XYZAL [Concomitant]
     Active Substance: LEVOCETIRIZINE DIHYDROCHLORIDE
     Dates: start: 20230106
  7. VENTOLIN HFA [Concomitant]
     Active Substance: ALBUTEROL SULFATE
     Dates: start: 20230106
  8. KCL [Concomitant]
     Active Substance: POTASSIUM CHLORIDE
     Dates: start: 20230106
  9. PROTONIX [Concomitant]
     Active Substance: PANTOPRAZOLE SODIUM
     Dates: start: 20230106
  10. LIPITOR [Concomitant]
     Active Substance: ATORVASTATIN CALCIUM
     Dates: start: 20230106
  11. BUSPAR [Concomitant]
     Active Substance: BUSPIRONE HYDROCHLORIDE
  12. CLONIDINE [Concomitant]
     Active Substance: CLONIDINE
     Dosage: 0.2
     Dates: start: 20230106

REACTIONS (2)
  - Dyspnoea [Recovered/Resolved]
  - Infusion related reaction [Recovered/Resolved]

NARRATIVE: CASE EVENT DATE: 20230329
